FAERS Safety Report 15285937 (Version 1)
Quarter: 2018Q4

REPORT INFORMATION
  Report Type: Report from Study
  Country: IT (occurrence: IT)
  Receive Date: 20180816
  Receipt Date: 20180816
  Transmission Date: 20190204
  Serious: Yes (Other)
  Sender: FDA-Public Use
  Company Number: IT-TEVA-2018-IT-941149

PATIENT
  Age: 71 Year
  Sex: Female

DRUGS (4)
  1. DELTACORTENE 25 MG COMPRESSE [Suspect]
     Active Substance: PREDNISONE
     Indication: TINNITUS
     Route: 048
     Dates: start: 20180510, end: 20180510
  2. NASONEX [Suspect]
     Active Substance: MOMETASONE FUROATE
     Indication: TINNITUS
     Route: 045
     Dates: start: 20180510, end: 20180510
  3. FLUIMUCIL [Suspect]
     Active Substance: ACETYLCYSTEINE
     Indication: TINNITUS
     Route: 048
     Dates: start: 20180510, end: 20180510
  4. BORIC ACID [Concomitant]
     Active Substance: BORIC ACID
     Indication: TINNITUS
     Route: 061
     Dates: start: 20180510, end: 20180510

REACTIONS (3)
  - Pruritus generalised [Recovering/Resolving]
  - Urticaria [Recovering/Resolving]
  - Rash generalised [Recovering/Resolving]

NARRATIVE: CASE EVENT DATE: 20180511
